FAERS Safety Report 8371312 (Version 2)
Quarter: 2013Q1

REPORT INFORMATION
  Report Type: Report from Study
  Country: US (occurrence: US)
  Receive Date: 20120129
  Receipt Date: 20130129
  Transmission Date: 20140127
  Serious: No
  Sender: FDA-Public Use
  Company Number: US-ABBOTT-11P-163-0881648-00

PATIENT
  Age: 26 None
  Sex: Female
  Weight: 53.57 kg

DRUGS (10)
  1. HUMIRA 40 MG/0.8 ML PEN [Suspect]
     Indication: CROHN^S DISEASE
     Route: 058
     Dates: start: 20110719, end: 20110719
  2. HUMIRA 40 MG/0.8 ML PEN [Suspect]
     Route: 058
     Dates: start: 20110802, end: 20110802
  3. HUMIRA 40 MG/0.8 ML PEN [Suspect]
     Route: 058
     Dates: start: 20110816
  4. PREDNISONE [Concomitant]
     Indication: CROHN^S DISEASE
     Dates: end: 201110
  5. ASACOL [Concomitant]
     Indication: CROHN^S DISEASE
  6. ZOLOFT [Concomitant]
     Indication: DEPRESSION
  7. ZOLOFT [Concomitant]
     Indication: ANXIETY
  8. XANAX [Concomitant]
     Indication: ANXIETY
  9. XANAX [Concomitant]
     Indication: MENSTRUAL DISORDER
  10. UNNAMED STOOL SOFTENER [Concomitant]
     Indication: FAECES HARD

REACTIONS (11)
  - Rash pruritic [Not Recovered/Not Resolved]
  - Diarrhoea [Not Recovered/Not Resolved]
  - Abdominal pain [Not Recovered/Not Resolved]
  - Muscle spasms [Not Recovered/Not Resolved]
  - Chromaturia [Not Recovered/Not Resolved]
  - Unevaluable event [Unknown]
  - Blood urine present [Not Recovered/Not Resolved]
  - Menstruation delayed [Not Recovered/Not Resolved]
  - Drug ineffective [Not Recovered/Not Resolved]
  - Arthropathy [Recovering/Resolving]
  - Condition aggravated [Recovering/Resolving]
